FAERS Safety Report 8059381-2 (Version None)
Quarter: 2012Q1

REPORT INFORMATION
  Report Type: 
  Country: None (occurrence: None)
  Receive Date: 20120120
  Receipt Date: 20120117
  Transmission Date: 20120608
  Serious: Yes (Other)
  Sender: FDA-Public Use
  Company Number: US-PFIZER INC-2012014300

PATIENT

DRUGS (1)
  1. ZITHROMAX [Suspect]
     Indication: LYME DISEASE
     Dosage: UNK
     Route: 042

REACTIONS (2)
  - HEPATOMEGALY [None]
  - LYME DISEASE [None]
